FAERS Safety Report 23454106 (Version 1)
Quarter: 2024Q1

REPORT INFORMATION
  Report Type: Report from Study
  Country: US (occurrence: US)
  Receive Date: 20240130
  Receipt Date: 20240130
  Transmission Date: 20240409
  Serious: Yes (Other)
  Sender: FDA-Public Use
  Company Number: US-ABBVIE-5608521

PATIENT
  Sex: Female
  Weight: 108.4 kg

DRUGS (5)
  1. HUMIRA [Suspect]
     Active Substance: ADALIMUMAB
     Indication: Psoriasis
     Dosage: STRENGTH: 40 MG
     Route: 058
     Dates: start: 20040127
  2. METOPROLOL [Concomitant]
     Active Substance: METOPROLOL
     Indication: Heart rate decreased
  3. OMEPRAZOLE [Concomitant]
     Active Substance: OMEPRAZOLE
     Indication: Gastrooesophageal reflux disease
  4. ATORVASTATIN [Concomitant]
     Active Substance: ATORVASTATIN
     Indication: Cardiac disorder
  5. ASPIRIN [Concomitant]
     Active Substance: ASPIRIN
     Indication: Cardiac disorder

REACTIONS (11)
  - Coronary artery occlusion [Recovered/Resolved]
  - Acne [Recovering/Resolving]
  - Urticaria [Recovering/Resolving]
  - Myocardial infarction [Recovered/Resolved]
  - Psoriasis [Recovering/Resolving]
  - Stress [Recovering/Resolving]
  - Psoriasis [Recovered/Resolved]
  - Blood pressure increased [Recovered/Resolved]
  - Folliculitis [Recovered/Resolved]
  - Lupus-like syndrome [Recovered/Resolved]
  - Psoriasis [Recovering/Resolving]

NARRATIVE: CASE EVENT DATE: 20180101
